FAERS Safety Report 25894837 (Version 2)
Quarter: 2025Q4

REPORT INFORMATION
  Report Type: Spontaneous
  Country: US (occurrence: None)
  Receive Date: 20251008
  Receipt Date: 20251229
  Transmission Date: 20260117
  Serious: No
  Sender: CHIESI
  Company Number: US-CHIESI-2025CHF06199

PATIENT
  Age: 66 Year
  Sex: Female
  Weight: 76.198 kg

DRUGS (1)
  1. FILSUVEZ [Suspect]
     Active Substance: BIRCH TRITERPENES
     Indication: Epidermolysis bullosa
     Dosage: UNK, PRN
     Route: 048
     Dates: start: 20250820

REACTIONS (5)
  - Wound infection [Recovering/Resolving]
  - Wound complication [Recovering/Resolving]
  - Wound secretion [Recovering/Resolving]
  - Wound complication [Recovering/Resolving]
  - Product administration interrupted [Not Recovered/Not Resolved]

NARRATIVE: CASE EVENT DATE: 20250801
